FAERS Safety Report 7964364-4 (Version None)
Quarter: 2011Q4

REPORT INFORMATION
  Report Type: 
  Country: None (occurrence: None)
  Receive Date: 20111208
  Receipt Date: 20111125
  Transmission Date: 20120403
  Serious: Yes (Other)
  Sender: FDA-Public Use
  Company Number: JP-PFIZER INC-2011296198

PATIENT
  Age: 81 Year
  Sex: Female
  Weight: 49 kg

DRUGS (7)
  1. GASMOTIN [Concomitant]
     Dosage: 15 MG, 1X/DAY
     Route: 048
     Dates: start: 20101215
  2. INDAPAMIDE [Concomitant]
     Dosage: UNK
     Route: 048
     Dates: start: 20100618
  3. CRESTOR [Concomitant]
     Dosage: UNK
     Route: 048
  4. OPALMON [Concomitant]
     Dosage: UNK
     Route: 048
     Dates: start: 20101215
  5. CELECOXIB [Suspect]
     Indication: OSTEOARTHRITIS
     Dosage: 100 MG, 2X/DAY
     Route: 048
     Dates: start: 20100618
  6. LANSOPRAZOLE [Concomitant]
     Dosage: 15 MG, 1X/DAY
     Route: 048
     Dates: start: 20101215
  7. METHYCOBAL [Concomitant]
     Dosage: UNK
     Route: 048
     Dates: start: 20100816

REACTIONS (2)
  - DIABETES MELLITUS [None]
  - GASTROOESOPHAGEAL REFLUX DISEASE [None]
